FAERS Safety Report 7523157-2 (Version None)
Quarter: 2011Q2

REPORT INFORMATION
  Report Type: 
  Country: None (occurrence: None)
  Receive Date: 20110525
  Receipt Date: 20110516
  Transmission Date: 20111010
  Serious: Yes (Other)
  Sender: FDA-Public Use
  Company Number: TPA2010A01017

PATIENT
  Age: 61 Year
  Sex: Female

DRUGS (7)
  1. INDOMETHACIN [Concomitant]
  2. AMLODIPINE [Concomitant]
  3. DICLOFENAC SODIUM [Concomitant]
  4. METFORMIN HCL [Concomitant]
  5. G SK BLINDED STUDY MEDICATION (ALL OTHER THERAPEUTIC PRODUCTS) [Suspect]
     Indication: TYPE 2 DIABETES MELLITUS
     Dates: start: 20091112
  6. PIOGLITAZONE [Suspect]
     Indication: TYPE 2 DIABETES MELLITUS
     Dosage: (30 MG) ORAL
     Route: 048
     Dates: start: 20090709, end: 20100222
  7. ENALAPRIL MALEATE [Concomitant]

REACTIONS (6)
  - RENAL IMPAIRMENT [None]
  - ANAEMIA [None]
  - REFLUX OESOPHAGITIS [None]
  - ULCER HAEMORRHAGE [None]
  - OESOPHAGEAL CANDIDIASIS [None]
  - UPPER GASTROINTESTINAL HAEMORRHAGE [None]
